FAERS Safety Report 4895608-3 (Version None)
Quarter: 2006Q1

REPORT INFORMATION
  Report Type: 
  Country: None (occurrence: None)
  Receive Date: 20060125
  Receipt Date: 20060104
  Transmission Date: 20060701
  Serious: Yes (Death)
  Sender: FDA-Public Use
  Company Number: US200601000760

PATIENT
  Age: 1 Day
  Sex: 0

DRUGS (3)
  1. ZYPREXA [Suspect]
  2. HEROIN (DIAMORPHINE) [Concomitant]
  3. COCAINE HYDROCHLORIDE (COCAINE HYDROCHLORIDE) [Concomitant]

REACTIONS (2)
  - DRUG EXPOSURE DURING PREGNANCY [None]
  - DRUG TOXICITY [None]
